FAERS Safety Report 19419677 (Version 2)
Quarter: 2021Q3

REPORT INFORMATION
  Report Type: Report from Study
  Country: NL (occurrence: NL)
  Receive Date: 20210615
  Receipt Date: 20210721
  Transmission Date: 20211014
  Serious: Yes (Hospitalization, Other)
  Sender: FDA-Public Use
  Company Number: NL-AMGEN-NLDNI2021075943

PATIENT
  Age: 57 Year
  Sex: Female

DRUGS (10)
  1. AMG 510 [Suspect]
     Active Substance: AMG-510
     Dosage: 480 MILLIGRAM, QD
     Route: 048
     Dates: start: 20210607
  2. DOXYCYCLINE. [Concomitant]
     Active Substance: DOXYCYCLINE
     Dosage: 100 MILLIGRAM, QD
     Dates: start: 20210514, end: 20210522
  3. METOCLOPRAMIDE. [Concomitant]
     Active Substance: METOCLOPRAMIDE
     Dosage: UNK (Z.N)
     Route: 048
  4. FOLIUMZUUR [Concomitant]
     Active Substance: FOLIC ACID
     Dosage: 5 MILLIGRAM, QD
  5. AMG 510 [Suspect]
     Active Substance: AMG-510
     Dosage: 480 MILLIGRAM, QD
     Route: 048
     Dates: start: 20210527, end: 20210604
  6. SEROXAT [Concomitant]
     Active Substance: PAROXETINE HYDROCHLORIDE
     Dosage: 10 MILLIGRAM, QD
  7. LEVOTHYROXINE. [Concomitant]
     Active Substance: LEVOTHYROXINE
     Dosage: 100 MICROGRAM, QD
  8. DOMPERIDON [DOMPERIDONE] [Concomitant]
     Active Substance: DOMPERIDONE
     Dosage: UNK
     Dates: start: 20210420
  9. PEMBROLIZUMAB. [Suspect]
     Active Substance: PEMBROLIZUMAB
     Indication: NON-SMALL CELL LUNG CANCER
     Dosage: UNK
     Route: 065
     Dates: start: 20210128, end: 20210405
  10. AMG 510 [Suspect]
     Active Substance: AMG-510
     Indication: NON-SMALL CELL LUNG CANCER
     Dosage: 960 MILLIGRAM, QD
     Route: 048
     Dates: start: 20210421, end: 20210517

REACTIONS (2)
  - Liver function test abnormal [Recovered/Resolved]
  - Pneumonia [Recovered/Resolved]

NARRATIVE: CASE EVENT DATE: 20210517
